FAERS Safety Report 11587921 (Version 1)
Quarter: 2015Q4

REPORT INFORMATION
  Report Type: Spontaneous
  Country: US (occurrence: US)
  Receive Date: 20151001
  Receipt Date: 20151001
  Transmission Date: 20160304
  Serious: Yes (Other)
  Sender: FDA-Public Use
  Company Number: US-MEDA-2014100065

PATIENT
  Sex: Female

DRUGS (1)
  1. FELBAMATE. [Suspect]
     Active Substance: FELBAMATE
     Dates: start: 2011

REACTIONS (3)
  - Seizure [Unknown]
  - Drug dose omission [Recovered/Resolved]
  - Blood test abnormal [Unknown]

NARRATIVE: CASE EVENT DATE: 201308
